FAERS Safety Report 6885253-2 (Version None)
Quarter: 2010Q3

REPORT INFORMATION
  Report Type: 
  Country: None (occurrence: None)
  Receive Date: 20100729
  Receipt Date: 20100729
  Transmission Date: 20110219
  Serious: Yes (Other)
  Sender: FDA-Public Use
  Company Number: None

PATIENT
  Sex: Female
  Weight: 74.8435 kg

DRUGS (1)
  1. CLOBEX [Suspect]
     Indication: ARTHROPOD STING
     Dosage: ABOUT A QUARTER-SIZE WORTH ONCE AT BEDTIME TOP
     Route: 061
     Dates: start: 20100727, end: 20100727

REACTIONS (3)
  - INDURATION [None]
  - PAIN [None]
  - RASH ERYTHEMATOUS [None]
